FAERS Safety Report 10095033 (Version 1)
Quarter: 2014Q2

REPORT INFORMATION
  Report Type: Spontaneous
  Country: GB (occurrence: GB)
  Receive Date: 20140422
  Receipt Date: 20140422
  Transmission Date: 20141212
  Serious: Yes (Other)
  Sender: FDA-Public Use
  Company Number: GB-ASTRAZENECA-2014SE25877

PATIENT
  Age: 32 Year
  Sex: Female

DRUGS (5)
  1. SYMBICORT [Suspect]
     Route: 055
     Dates: start: 20140401
  2. AMOXICILLIN [Concomitant]
     Dates: start: 20140327, end: 20140401
  3. CICLESONIDE [Concomitant]
     Dates: start: 20131003, end: 20140131
  4. PREDNISOLONE [Concomitant]
     Dates: start: 20140327, end: 20140401
  5. VENTOLIN [Concomitant]
     Dates: start: 20140401

REACTIONS (1)
  - Hyperaesthesia [Recovering/Resolving]
